FAERS Safety Report 11323981 (Version 5)
Quarter: 2015Q4

REPORT INFORMATION
  Report Type: Spontaneous
  Country: US (occurrence: US)
  Receive Date: 20150730
  Receipt Date: 20151105
  Transmission Date: 20160304
  Serious: Yes (Hospitalization, Disabling, Other)
  Sender: FDA-Public Use
  Company Number: US-PFIZER INC-2015249974

PATIENT
  Age: 57 Year
  Sex: Female
  Weight: 104 kg

DRUGS (30)
  1. WELLBUTRIN XL [Concomitant]
     Active Substance: BUPROPION HYDROCHLORIDE
     Dosage: 300 MG, DAILY
     Route: 048
  2. METAMUCIL [Concomitant]
     Active Substance: PLANTAGO SEED
     Dosage: 2 CAP, AS NEEDED (Q48HPRN)
     Route: 048
  3. VITAMIN D [Concomitant]
     Active Substance: CHOLECALCIFEROL
     Dosage: 50000 IU, Q 72HR
     Route: 048
     Dates: end: 20150607
  4. MIRALAX [Concomitant]
     Active Substance: POLYETHYLENE GLYCOL 3350
     Dosage: 1 DF, 2X/DAY PRN
     Route: 048
  5. LASIX [Concomitant]
     Active Substance: FUROSEMIDE
     Dosage: 20 MG, SINGLE
  6. SODIUM CHLORIDE. [Concomitant]
     Active Substance: SODIUM CHLORIDE
     Dosage: 10 ML, UNK (FLUSH IV)
     Route: 042
     Dates: end: 20150606
  7. VANCOCIN [Concomitant]
     Active Substance: VANCOMYCIN HYDROCHLORIDE
     Dosage: 15 MG/KG, Q12HR 2X/DAY
     Route: 042
     Dates: end: 20150607
  8. KLONOPIN [Concomitant]
     Active Substance: CLONAZEPAM
     Indication: ANXIETY
     Dosage: 1 MG, 3X/DAY (AS NEEDED)
     Route: 048
  9. MINIPRESS [Concomitant]
     Active Substance: PRAZOSIN HYDROCHLORIDE
     Dosage: 10 MG, 1X/DAY (QHS) (EVERY NIGHT AT BEDTIME)
     Route: 048
  10. PREGABALIN. [Concomitant]
     Active Substance: PREGABALIN
     Dosage: 200 MG, 2X/DAY
     Route: 048
     Dates: end: 20150607
  11. HEPARIN [Concomitant]
     Active Substance: HEPARIN SODIUM
     Dosage: (10 UNIT/ML ADULT FLUSH SOLUTION) 30-50 FLUSH IV UNITS
     Route: 042
     Dates: end: 20150607
  12. LYRICA [Suspect]
     Active Substance: PREGABALIN
     Indication: NEUROPATHY PERIPHERAL
  13. SODIUM CHLORIDE. [Concomitant]
     Active Substance: SODIUM CHLORIDE
     Dosage: 10 ML, UNK (FLUSH IV)
     Route: 042
     Dates: end: 20150607
  14. DILAUDID [Concomitant]
     Active Substance: HYDROMORPHONE HYDROCHLORIDE
     Dosage: PF SOLUTION 0.5-1.0 MG (Q 3H PRN)
     Route: 042
     Dates: end: 20150605
  15. PRILOSEC [Concomitant]
     Active Substance: OMEPRAZOLE MAGNESIUM
     Dosage: 40 MG, 2X/DAY
     Route: 048
  16. SYNTHROID [Concomitant]
     Active Substance: LEVOTHYROXINE SODIUM
     Dosage: 100 ?G, UNK
  17. LEVOTHYROXINE. [Concomitant]
     Active Substance: LEVOTHYROXINE
     Dosage: 100 ?G, DAILY
     Route: 048
  18. QUETIAPINE [Concomitant]
     Active Substance: QUETIAPINE
     Dosage: 800 MG, 1X/DAY (QHS)
     Route: 048
     Dates: end: 20150606
  19. XYLOCAINE [Concomitant]
     Active Substance: LIDOCAINE HYDROCHLORIDE
     Dosage: 5 ML, UNK (IVTHERAPY)
     Route: 023
     Dates: end: 20150605
  20. VOLTAREN [Concomitant]
     Active Substance: DICLOFENAC SODIUM
     Dosage: 100 MG, 1X/DAY (CC BREAKFAST)
     Route: 048
  21. PRAMIPEXOLE. [Concomitant]
     Active Substance: PRAMIPEXOLE
     Dosage: 2 MG, 1X/DAY (QHS) (EVERY NIGHT AT BEDTIME)
     Route: 048
  22. PRAZOSIN [Concomitant]
     Active Substance: PRAZOSIN
     Dosage: 10 MG, UNK
  23. COLACE [Concomitant]
     Active Substance: DOCUSATE SODIUM
     Dosage: 50 MG, 2X/DAY
     Route: 048
     Dates: end: 20150607
  24. FORTEO [Concomitant]
     Active Substance: TERIPARATIDE
     Dosage: (600 MCG/2.4ML) 20 ?G, DAILY
     Route: 058
  25. LYRICA [Suspect]
     Active Substance: PREGABALIN
     Indication: NEURALGIA
     Dosage: 200 MG, 2X/DAY
     Route: 048
     Dates: start: 20130516
  26. NORCO [Concomitant]
     Active Substance: ACETAMINOPHEN\HYDROCODONE BITARTRATE
     Dosage: (HYDROCODONE 10 MG/ACETAMINOPHEN 325 MG) 1 TAB (Q4H, PRN)
     Route: 048
  27. SODIUM CHLORIDE. [Concomitant]
     Active Substance: SODIUM CHLORIDE
     Dosage: 10 ML, UNK (FLUSH IV)
     Route: 042
     Dates: end: 20150605
  28. TYLENOL [Concomitant]
     Active Substance: ACETAMINOPHEN
     Dosage: 325-650MG Q4H PRN
     Route: 048
  29. ENOXAPARIN [Concomitant]
     Active Substance: ENOXAPARIN
     Dosage: 40 MG, DAILY
     Route: 058
     Dates: end: 20150607
  30. CALCIUM CARB + VIT D [Concomitant]
     Dosage: CALCIUM CARBONATE 500MG-VIT. D 200MG
     Route: 048
     Dates: end: 20150606

REACTIONS (18)
  - Osteomyelitis chronic [Unknown]
  - Foot deformity [Not Recovered/Not Resolved]
  - Cellulitis [Unknown]
  - Abscess [Unknown]
  - Infection [Unknown]
  - Staphylococcal infection [Recovered/Resolved]
  - Stasis dermatitis [Unknown]
  - Mononeuritis [Unknown]
  - Condition aggravated [Not Recovered/Not Resolved]
  - Wound infection [Unknown]
  - Osteomalacia [Unknown]
  - Staphylococcal infection [Unknown]
  - Osteoporosis [Unknown]
  - Seborrhoeic keratosis [Unknown]
  - Haemangioma of skin [Unknown]
  - Neoplasm skin [Unknown]
  - Pain in extremity [Unknown]
  - Anaemia [Unknown]

NARRATIVE: CASE EVENT DATE: 20140321
